FAERS Safety Report 12025424 (Version 1)
Quarter: 2016Q1

REPORT INFORMATION
  Report Type: Report from Study
  Country: US (occurrence: US)
  Receive Date: 20160206
  Receipt Date: 20160206
  Transmission Date: 20160526
  Serious: No
  Sender: FDA-Public Use
  Company Number: US-ABBVIE-15K-163-1481858-00

PATIENT
  Age: 57 Year
  Sex: Female

DRUGS (1)
  1. HUMIRA [Suspect]
     Active Substance: ADALIMUMAB
     Indication: RHEUMATOID ARTHRITIS
     Route: 058
     Dates: start: 20150712

REACTIONS (5)
  - Dyspnoea [Unknown]
  - Ear disorder [Unknown]
  - Nasal congestion [Unknown]
  - Nasopharyngitis [Not Recovered/Not Resolved]
  - Infection transmission via personal contact [Unknown]

NARRATIVE: CASE EVENT DATE: 201510
